FAERS Safety Report 21991774 (Version 3)
Quarter: 2023Q1

REPORT INFORMATION
  Report Type: Report from Study
  Country: US (occurrence: US)
  Receive Date: 20230214
  Receipt Date: 20230320
  Transmission Date: 20230417
  Serious: No
  Sender: FDA-Public Use
  Company Number: US-002147023-NVSC2023US032738

PATIENT
  Age: 68 Year
  Sex: Male

DRUGS (1)
  1. LEQVIO [Suspect]
     Active Substance: INCLISIRAN SODIUM
     Indication: Product used for unknown indication
     Dosage: UNK
     Route: 058
     Dates: start: 20221103

REACTIONS (4)
  - Neck pain [Unknown]
  - Arthritis [Unknown]
  - SARS-CoV-2 test positive [Unknown]
  - Head discomfort [Unknown]

NARRATIVE: CASE EVENT DATE: 20230130
